FAERS Safety Report 4870712-4 (Version None)
Quarter: 2006Q1

REPORT INFORMATION
  Report Type: 
  Country: None (occurrence: None)
  Receive Date: 20060103
  Receipt Date: 20051222
  Transmission Date: 20060701
  Serious: Yes (Other)
  Sender: FDA-Public Use
  Company Number: ZA-GLAXOSMITHKLINE-B0404971A

PATIENT
  Sex: Female

DRUGS (2)
  1. WELLBUTRIN SR [Suspect]
     Indication: DEPRESSION
     Dosage: 150MG TWICE PER DAY
     Route: 048
  2. LAMICTAL [Concomitant]
     Dosage: 25MG PER DAY
     Route: 048
     Dates: start: 20051216, end: 20051220

REACTIONS (7)
  - ASTHENIA [None]
  - BLOOD CREATININE INCREASED [None]
  - BLOOD THYROID STIMULATING HORMONE DECREASED [None]
  - DYSTONIA [None]
  - FACIAL PALSY [None]
  - MUSCLE SPASMS [None]
  - MUSCLE TWITCHING [None]
